FAERS Safety Report 11793769 (Version 3)
Quarter: 2016Q1

REPORT INFORMATION
  Report Type: Spontaneous
  Country: SE (occurrence: SE)
  Receive Date: 20151202
  Receipt Date: 20160203
  Transmission Date: 20160525
  Serious: Yes (Other)
  Sender: FDA-Public Use
  Company Number: SE-SA-2015SA190276

PATIENT
  Age: 27 Year
  Sex: Female

DRUGS (10)
  1. CALCIUM FOLINATE [Suspect]
     Active Substance: LEUCOVORIN CALCIUM
     Indication: ADENOCARCINOMA OF COLON
     Route: 065
     Dates: start: 20130326
  2. OXALIPLATIN. [Suspect]
     Active Substance: OXALIPLATIN
     Indication: ADENOCARCINOMA OF COLON
     Route: 065
     Dates: start: 20130214
  3. RATIOGRASTIM [Concomitant]
     Active Substance: FILGRASTIM
     Dates: start: 20130422
  4. OXALIPLATIN. [Suspect]
     Active Substance: OXALIPLATIN
     Indication: ADENOCARCINOMA OF COLON
     Route: 065
     Dates: start: 20130326
  5. FLUOROURACIL. [Suspect]
     Active Substance: FLUOROURACIL
     Indication: ADENOCARCINOMA OF COLON
     Route: 065
     Dates: start: 20130422
  6. CALCIUM FOLINATE [Suspect]
     Active Substance: LEUCOVORIN CALCIUM
     Indication: ADENOCARCINOMA OF COLON
     Route: 065
     Dates: start: 20130422
  7. FLUOROURACIL. [Suspect]
     Active Substance: FLUOROURACIL
     Indication: ADENOCARCINOMA OF COLON
     Route: 065
     Dates: start: 20130326
  8. CALCIUM FOLINATE [Suspect]
     Active Substance: LEUCOVORIN CALCIUM
     Indication: ADENOCARCINOMA OF COLON
     Route: 065
     Dates: start: 20130214
  9. FLUOROURACIL. [Suspect]
     Active Substance: FLUOROURACIL
     Indication: ADENOCARCINOMA OF COLON
     Route: 065
     Dates: start: 20130214
  10. OXALIPLATIN. [Suspect]
     Active Substance: OXALIPLATIN
     Indication: ADENOCARCINOMA OF COLON
     Route: 065
     Dates: start: 20130422

REACTIONS (5)
  - Hypoalbuminaemia [Recovered/Resolved]
  - Thrombocytosis [Recovered/Resolved]
  - Pulmonary embolism [Recovered/Resolved]
  - Anaemia [Recovered/Resolved]
  - Infection [Recovered/Resolved]

NARRATIVE: CASE EVENT DATE: 2013
